FAERS Safety Report 16316488 (Version 3)
Quarter: 2019Q2

REPORT INFORMATION
  Report Type: Report from Study
  Country: KR (occurrence: KR)
  Receive Date: 20190515
  Receipt Date: 20190626
  Transmission Date: 20190711
  Serious: Yes (Hospitalization)
  Sender: FDA-Public Use
  Company Number: KR-EISAI MEDICAL RESEARCH-EC-2019-056366

PATIENT
  Age: 62 Year
  Sex: Male
  Weight: 61.4 kg

DRUGS (8)
  1. LENVATINIB [Suspect]
     Active Substance: LENVATINIB
     Indication: HEPATOCELLULAR CARCINOMA
     Dosage: 12 MG (BODY WEIGHT (BW) GREATER THAN OR EQUAL TO 60 KG) OR 8 MG (BW LESS THAN 60 KG)
     Route: 048
     Dates: start: 20190418
  2. BARACLUDE [Concomitant]
     Active Substance: ENTECAVIR
     Dates: start: 20180713
  3. PEMBROLIZUMAB. [Suspect]
     Active Substance: PEMBROLIZUMAB
     Route: 041
     Dates: start: 20190605
  4. PROBIOTICS [Concomitant]
     Active Substance: PROBIOTICS NOS
     Dates: start: 201810
  5. COZAAR PLUS F [Concomitant]
     Dates: start: 20190503, end: 20190510
  6. COZAAR [Concomitant]
     Active Substance: LOSARTAN POTASSIUM
     Dates: start: 20190424, end: 20190502
  7. PEMBROLIZUMAB. [Suspect]
     Active Substance: PEMBROLIZUMAB
     Indication: HEPATOCELLULAR CARCINOMA
     Route: 041
     Dates: start: 20190418, end: 20190418
  8. VITAMIN D [Concomitant]
     Active Substance: VITAMIN D NOS
     Dates: start: 201807

REACTIONS (1)
  - Hypertension [Recovering/Resolving]

NARRATIVE: CASE EVENT DATE: 20190510
